FAERS Safety Report 24969842 (Version 1)
Quarter: 2025Q1

REPORT INFORMATION
  Report Type: Spontaneous
  Country: MX (occurrence: MX)
  Receive Date: 20250214
  Receipt Date: 20250214
  Transmission Date: 20250408
  Serious: Yes (Other)
  Sender: ROCHE
  Company Number: MX-ROCHE-10000201753

PATIENT
  Sex: Male

DRUGS (1)
  1. FARICIMAB [Suspect]
     Active Substance: FARICIMAB
     Indication: Diabetic retinopathy
     Route: 065

REACTIONS (3)
  - Off label use [Unknown]
  - Inflammation [Unknown]
  - Granuloma [Unknown]
